FAERS Safety Report 12661889 (Version 3)
Quarter: 2016Q3

REPORT INFORMATION
  Report Type: Report from Study
  Country: US (occurrence: US)
  Receive Date: 20160817
  Receipt Date: 20160824
  Transmission Date: 20161109
  Serious: Yes (Hospitalization, Other)
  Sender: FDA-Public Use
  Company Number: PHEH2016US020641

PATIENT
  Age: 45 Year
  Sex: Female
  Weight: 112 kg

DRUGS (1)
  1. GILENYA [Suspect]
     Active Substance: FINGOLIMOD HYDROCHLORIDE
     Indication: PRODUCT USED FOR UNKNOWN INDICATION
     Dosage: UNK
     Route: 065

REACTIONS (6)
  - Septic shock [Recovered/Resolved]
  - Lymphocyte count decreased [Unknown]
  - Escherichia urinary tract infection [Unknown]
  - Pharyngitis streptococcal [Unknown]
  - Streptococcal infection [Recovered/Resolved]
  - Streptococcal abscess [Unknown]

NARRATIVE: CASE EVENT DATE: 20160616
